FAERS Safety Report 4322507-8 (Version None)
Quarter: 2004Q1

REPORT INFORMATION
  Report Type: 
  Country: None (occurrence: None)
  Receive Date: 20040319
  Receipt Date: 20040309
  Transmission Date: 20041129
  Serious: Yes (Hospitalization)
  Sender: FDA-Public Use
  Company Number: HQWYE651009MAR04

PATIENT
  Age: 41 Year
  Sex: Female

DRUGS (1)
  1. NORGESTREL AND ETHINYL ESTRADIOL [Suspect]
     Indication: CONTRACEPTION
     Dosage: ORAL
     Route: 048
     Dates: start: 20030812

REACTIONS (5)
  - HEPATIC VEIN THROMBOSIS [None]
  - MESENTERIC VEIN THROMBOSIS [None]
  - NAUSEA [None]
  - PORTAL VEIN THROMBOSIS [None]
  - VOMITING [None]
